FAERS Safety Report 10913707 (Version 1)
Quarter: 2015Q1

REPORT INFORMATION
  Report Type: Spontaneous
  Country: None (occurrence: None)
  Receive Date: 20150311
  Receipt Date: 20150311
  Transmission Date: 20150721
  Serious: No
  Sender: FDA-Public Use
  Company Number: None

PATIENT
  Age: 64 Year
  Sex: Female
  Weight: 90.72 kg

DRUGS (4)
  1. SIMVASTATIN 40MG LUPIN [Suspect]
     Active Substance: SIMVASTATIN
     Indication: BLOOD CHOLESTEROL INCREASED
     Dosage: 1 PILL
     Route: 048
  2. SIMV [Concomitant]
  3. MULTIVIT [Concomitant]
     Active Substance: VITAMINS
  4. METOPROLOL [Concomitant]
     Active Substance: METOPROLOL

REACTIONS (9)
  - Cataract [None]
  - Tachycardia [None]
  - Fatigue [None]
  - Muscle spasms [None]
  - Gastrointestinal disorder [None]
  - Amnesia [None]
  - Condition aggravated [None]
  - Depression [None]
  - Alopecia [None]
